FAERS Safety Report 9758952 (Version 1)
Quarter: 2013Q4

REPORT INFORMATION
  Report Type: Spontaneous
  Country: US (occurrence: None)
  Receive Date: 20131213
  Receipt Date: 20131213
  Transmission Date: 20140711
  Serious: Yes (Other)
  Sender: FDA-Public Use
  Company Number: None

PATIENT
  Sex: Female

DRUGS (1)
  1. VELCADE MILLENNIUM [Suspect]
     Indication: PLASMA CELL MYELOMA

REACTIONS (4)
  - Neuropathy peripheral [None]
  - Musculoskeletal disorder [None]
  - Arthropathy [None]
  - Quality of life decreased [None]
